FAERS Safety Report 11530200 (Version 2)
Quarter: 2016Q2

REPORT INFORMATION
  Report Type: Spontaneous
  Country: US (occurrence: US)
  Receive Date: 20150921
  Receipt Date: 20160602
  Transmission Date: 20160815
  Serious: Yes (Death, Other)
  Sender: FDA-Public Use
  Company Number: US-TAKEDA-TPA2013A05263

PATIENT

DRUGS (7)
  1. AMARYL [Concomitant]
     Active Substance: GLIMEPIRIDE
     Dosage: 2 MG, UNK
     Dates: start: 20080925, end: 20090625
  2. ACTOS [Suspect]
     Active Substance: PIOGLITAZONE HYDROCHLORIDE
     Indication: TYPE 2 DIABETES MELLITUS
     Dosage: 15 MG, UNK
     Route: 048
     Dates: start: 20060620, end: 20060717
  3. METFORMIN [Concomitant]
     Active Substance: METFORMIN HYDROCHLORIDE
     Dosage: 500 MG, UNK
     Dates: start: 20050321, end: 200809
  4. ACTOPLUS MET [Suspect]
     Active Substance: METFORMIN HYDROCHLORIDE\PIOGLITAZONE HYDROCHLORIDE
     Indication: TYPE 2 DIABETES MELLITUS
     Dosage: UNK
     Route: 048
     Dates: start: 20060724, end: 20070711
  5. ACTOS [Suspect]
     Active Substance: PIOGLITAZONE HYDROCHLORIDE
     Dosage: 15 MG, UNK
     Route: 048
     Dates: start: 20080925, end: 20090129
  6. GLUCOPHAGE [Concomitant]
     Active Substance: METFORMIN HYDROCHLORIDE
     Dosage: UNK
  7. JANUVIA [Concomitant]
     Active Substance: SITAGLIPTIN PHOSPHATE
     Dosage: UNK

REACTIONS (3)
  - Death [Fatal]
  - Prostate cancer [Unknown]
  - Bladder cancer [Unknown]

NARRATIVE: CASE EVENT DATE: 2006
